FAERS Safety Report 24632809 (Version 2)
Quarter: 2024Q4

REPORT INFORMATION
  Report Type: Spontaneous
  Country: CN (occurrence: CN)
  Receive Date: 20241118
  Receipt Date: 20241126
  Transmission Date: 20250115
  Serious: Yes (Hospitalization, Other)
  Sender: PURDUE
  Company Number: CN-PURDUE PHARMA-USA-2024-0313279

PATIENT
  Age: 79 Year
  Sex: Male

DRUGS (35)
  1. OXYCODONE HYDROCHLORIDE [Suspect]
     Active Substance: OXYCODONE HYDROCHLORIDE
     Indication: Cancer pain
     Dosage: 10 MILLIGRAM, BID (TWICE DAILY)
     Route: 048
     Dates: start: 202303
  2. OXYCODONE HYDROCHLORIDE [Suspect]
     Active Substance: OXYCODONE HYDROCHLORIDE
     Dosage: 320 MILLIGRAM, BID (TWICE DAILY) (OVER THE FOLLOWING 4 MONTHS, THE DOSE OF OXYCODONE WAS INCREASED A
     Route: 048
     Dates: start: 20230830
  3. MORPHINE HYDROCHLORIDE [Concomitant]
     Active Substance: MORPHINE HYDROCHLORIDE
     Indication: Breakthrough pain
     Dosage: 128 MILLIGRAM
     Route: 048
  4. MORPHINE HYDROCHLORIDE [Concomitant]
     Active Substance: MORPHINE HYDROCHLORIDE
     Indication: Breakthrough pain
     Dosage: 5 MILLIGRAM
     Route: 065
  5. MORPHINE HYDROCHLORIDE [Concomitant]
     Active Substance: MORPHINE HYDROCHLORIDE
     Dosage: 120 MILLIGRAM
     Route: 058
  6. CODEINE PHOSPHATE [Concomitant]
     Active Substance: CODEINE PHOSPHATE
     Indication: Cancer pain
     Dosage: 30 MILLIGRAM, TID
     Route: 065
  7. IBUPROFEN [Concomitant]
     Active Substance: IBUPROFEN
     Indication: Cancer pain
     Dosage: 0.6 G, BID (TWICE DAILY)
     Route: 048
  8. INCADRONATE DISODIUM [Concomitant]
     Active Substance: INCADRONATE DISODIUM
     Indication: Cancer pain
     Dosage: 300 MILLIGRAM, DAILY (D1-5)
     Route: 065
  9. INCADRONATE DISODIUM [Concomitant]
     Active Substance: INCADRONATE DISODIUM
     Indication: Colorectal cancer metastatic
  10. OXALIPLATIN [Concomitant]
     Active Substance: OXALIPLATIN
     Indication: Chemotherapy
     Dosage: 200 MG (EIGHT CYCLES)  (200 MG, D1)
     Route: 065
  11. OXALIPLATIN [Concomitant]
     Active Substance: OXALIPLATIN
     Dosage: 130 MILLIGRAM (130 MG, D1)
     Route: 065
     Dates: start: 20211031
  12. OXALIPLATIN [Concomitant]
     Active Substance: OXALIPLATIN
     Dosage: 130 MILLIGRAM
     Route: 065
     Dates: start: 20211117
  13. OXALIPLATIN [Concomitant]
     Active Substance: OXALIPLATIN
     Dosage: 200 MILLIGRAM (FOUR CYCLES) (200 MG, D1)
     Route: 065
  14. CAPECITABINE [Concomitant]
     Active Substance: CAPECITABINE
     Indication: Chemotherapy
     Dosage: 1,500 MG, BID (EIGHT CYCLES) (1,500 MG, BID, D1-14)
     Route: 065
  15. BEVACIZUMAB [Concomitant]
     Active Substance: BEVACIZUMAB
     Indication: Chemotherapy
     Dosage: 0.3 G  (0.3 G, D1)
     Route: 065
     Dates: start: 20211031
  16. BEVACIZUMAB [Concomitant]
     Active Substance: BEVACIZUMAB
     Indication: Colorectal cancer metastatic
     Dosage: 0.3 G
     Route: 065
     Dates: start: 20211117
  17. BEVACIZUMAB [Concomitant]
     Active Substance: BEVACIZUMAB
     Dosage: 0.4 G (FOUR CYCLES)  (0.4 G, D1)
     Route: 065
  18. BEVACIZUMAB [Concomitant]
     Active Substance: BEVACIZUMAB
     Dosage: 0.4 G (SEVEN CYCLES) (0.4 G, D1)
     Route: 065
  19. LEUCOVORIN [Concomitant]
     Active Substance: LEUCOVORIN\LEUCOVORIN CALCIUM
     Indication: Chemotherapy
     Dosage: 600 MILLIGRAM (600 MG, D1)
     Route: 065
     Dates: start: 20211031
  20. LEUCOVORIN [Concomitant]
     Active Substance: LEUCOVORIN\LEUCOVORIN CALCIUM
     Dosage: 600 MILLIGRAM
     Route: 065
     Dates: start: 20211117
  21. FLUOROURACIL [Concomitant]
     Active Substance: FLUOROURACIL
     Indication: Chemotherapy
     Dosage: 0.75 G AS A BOLUS
     Route: 065
     Dates: start: 20211031
  22. FLUOROURACIL [Concomitant]
     Active Substance: FLUOROURACIL
     Dosage: 4 G INFUSED VIA CADD FOR 46 HOURS
     Route: 065
     Dates: start: 20211031
  23. FLUOROURACIL [Concomitant]
     Active Substance: FLUOROURACIL
     Dosage: 0.75 G AS A BOLUS
     Route: 065
     Dates: start: 20211117
  24. FLUOROURACIL [Concomitant]
     Active Substance: FLUOROURACIL
     Dosage: 4 G INFUSED VIA CADD FOR 46 HOURS
     Route: 065
     Dates: start: 20211117
  25. FLUOROURACIL [Concomitant]
     Active Substance: FLUOROURACIL
     Dosage: 0.7 G (EIGHTH CYCLE) 0.7 G, D1
     Route: 065
  26. FLUOROURACIL [Concomitant]
     Active Substance: FLUOROURACIL
     Dosage: 4 G (EIGHTH CYCLE) CONTINUOUS INFUSION FROM D2 TO D3)
     Route: 065
  27. CETUXIMAB [Concomitant]
     Active Substance: CETUXIMAB
     Indication: Chemotherapy
     Dosage: 800 MILLIGRAM (EIGHTH CYCLE) (800 MG, D1)
     Route: 065
  28. CETUXIMAB [Concomitant]
     Active Substance: CETUXIMAB
     Dosage: 0.8 G (CYCLES 9 TO 12) (0.8 G, D1)
     Route: 065
  29. LEVOLEUCOVORIN [Concomitant]
     Active Substance: LEVOLEUCOVORIN
     Indication: Chemotherapy
     Dosage: 300 MILLIGRAM (EIGHTH CYCLE) 300 MG, D1
     Route: 065
  30. IRINOTECAN [Concomitant]
     Active Substance: IRINOTECAN
     Indication: Chemotherapy
     Dosage: 280 MILLIGRAM (CYCLES 9 TO 12) 280 MG, D1
     Route: 065
  31. RALTITREXED [Concomitant]
     Active Substance: RALTITREXED
     Indication: Chemotherapy
     Dosage: 4 MILLIGRAM (FOUR CYCLES) (4 MG, D1)
     Route: 065
  32. TRIFLURIDINE [Concomitant]
     Active Substance: TRIFLURIDINE
     Indication: Chemotherapy
     Dosage: 60 MILLIGRAM (60 MG, D1-5 AND D8-12)
     Route: 065
  33. TRIFLURIDINE [Concomitant]
     Active Substance: TRIFLURIDINE
     Indication: Colorectal cancer metastatic
     Dosage: 0.4 G (D-1)
     Route: 065
     Dates: start: 2023
  34. TIPIRACIL HYDROCHLORIDE [Concomitant]
     Active Substance: TIPIRACIL HYDROCHLORIDE
     Indication: Chemotherapy
     Dosage: 60 MILLIGRAM S (60 MG, D1-5 AND D8-12)
     Route: 065
     Dates: start: 2023
  35. TIPIRACIL HYDROCHLORIDE [Concomitant]
     Active Substance: TIPIRACIL HYDROCHLORIDE
     Indication: Colorectal cancer metastatic

REACTIONS (15)
  - Renal impairment [Not Recovered/Not Resolved]
  - Emotional distress [Unknown]
  - Thrombocytopenia [Unknown]
  - C-reactive protein increased [Unknown]
  - Hyponatraemia [Unknown]
  - Jaundice cholestatic [Unknown]
  - Decreased appetite [Unknown]
  - Hepatic function abnormal [Unknown]
  - Constipation [Recovering/Resolving]
  - Pain [Recovering/Resolving]
  - Fatigue [Unknown]
  - Anxiety [Recovering/Resolving]
  - Insomnia [Recovering/Resolving]
  - Nausea [Recovering/Resolving]
  - Inadequate analgesia [Unknown]
